FAERS Safety Report 21854207 (Version 1)
Quarter: 2023Q1

REPORT INFORMATION
  Report Type: Spontaneous
  Country: DE (occurrence: DE)
  Receive Date: 20230112
  Receipt Date: 20230112
  Transmission Date: 20230418
  Serious: Yes (Hospitalization)
  Sender: FDA-Public Use
  Company Number: DE-ADRED-04383-01

PATIENT
  Age: 69 Year
  Sex: Female

DRUGS (10)
  1. PACLITAXEL [Suspect]
     Active Substance: PACLITAXEL
     Indication: Product used for unknown indication
     Dosage: 130MG, UNTIL 14NOV2019
     Route: 065
  2. METOPROLOL [Concomitant]
     Active Substance: METOPROLOL
     Indication: Product used for unknown indication
     Dosage: 23.75 MG, NK, RETARD-TABLET?PROLONGED RELEASE TABLET
  3. CANDESARTAN [Concomitant]
     Active Substance: CANDESARTAN
     Indication: Product used for unknown indication
     Dosage: 32 MG, NK, TABLET
  4. URAPIDIL [Concomitant]
     Active Substance: URAPIDIL
     Indication: Product used for unknown indication
     Dosage: 90 MG, NK, RETARD CAPSULES?PROLONGED-RELEASE CAPSULE
     Route: 065
  5. URAPIDIL [Concomitant]
     Active Substance: URAPIDIL
     Dosage: 30 MG, NK, RETARD-CAPSULE?PROLONGED-RELEASE CAPSULE
  6. Eisen(II) [Concomitant]
     Indication: Product used for unknown indication
     Dosage: 55 MG, NK, RETARD-CAPSULE?PROLONGED-RELEASE CAPSULE
  7. NALOXONE HYDROCHLORIDE\TILIDINE HYDROCHLORIDE [Concomitant]
     Active Substance: NALOXONE HYDROCHLORIDE\TILIDINE HYDROCHLORIDE
     Indication: Product used for unknown indication
     Dosage: 8|100 MG, NK, RETARD-TABLET?PROLONGED-RELEASE TABLET
     Route: 065
  8. PANTOPRAZOLE SODIUM [Concomitant]
     Active Substance: PANTOPRAZOLE SODIUM
     Indication: Product used for unknown indication
     Dosage: 40 MG, NK, TABLET
     Route: 065
  9. FERROUS GLYCINE SULFATE [Concomitant]
     Active Substance: FERROUS GLYCINE SULFATE
     Indication: Product used for unknown indication
     Dosage: 55 MG, NK, RETARD-CAPSULE
     Route: 065
  10. LEVOTHYROXINE-NATRIUM [Concomitant]
     Indication: Product used for unknown indication
     Dosage: 50 ?G, NK, TABLET
     Route: 065

REACTIONS (4)
  - General physical health deterioration [None]
  - Anaemia [None]
  - Decreased appetite [None]
  - Leukopenia [None]
